FAERS Safety Report 6618224-1 (Version None)
Quarter: 2010Q1

REPORT INFORMATION
  Report Type: 
  Country: None (occurrence: None)
  Receive Date: 20100308
  Receipt Date: 20090511
  Transmission Date: 20100710
  Serious: No
  Sender: FDA-Public Use
  Company Number: US-B.I. PHARMACEUTICALS,INC./RIDGEFIELD-2009-BP-05955BP

PATIENT
  Sex: Female

DRUGS (1)
  1. FLOMAX [Suspect]
     Indication: RENAL STONE REMOVAL
     Dosage: 0.8 MG

REACTIONS (3)
  - DIZZINESS [None]
  - HYPERHIDROSIS [None]
  - LOSS OF CONSCIOUSNESS [None]
